FAERS Safety Report 8458659-8 (Version None)
Quarter: 2012Q2

REPORT INFORMATION
  Report Type: 
  Country: None (occurrence: None)
  Receive Date: 20120622
  Receipt Date: 20120614
  Transmission Date: 20120825
  Serious: Yes (Hospitalization)
  Sender: FDA-Public Use
  Company Number: US-BAYER-2012-020174

PATIENT
  Age: 34 Year
  Sex: Female
  Weight: 74.83 kg

DRUGS (6)
  1. YASMIN [Suspect]
     Indication: CONTRACEPTION
     Dosage: UNK
     Dates: start: 20050101, end: 20080101
  2. YAZ [Suspect]
     Indication: CONTRACEPTION
     Dosage: UNK
     Dates: start: 20080101, end: 20100101
  3. DONNATAL [Concomitant]
     Dosage: UNK
     Dates: start: 20100519
  4. OMEPRAZOLE [Concomitant]
     Dosage: 20 MG, UNK
     Dates: start: 20100518
  5. BELLADONNA AND PHENOBARBITONE [Concomitant]
     Dosage: UNK
     Dates: start: 20100518
  6. DICYCLOMINE [Concomitant]
     Dosage: 20 MG, UNK
     Dates: start: 20100528

REACTIONS (3)
  - CHOLECYSTECTOMY [None]
  - ABDOMINAL PAIN [None]
  - DISCOMFORT [None]
